FAERS Safety Report 8237989 (Version 2)
Quarter: 2013Q4

REPORT INFORMATION
  Report Type: Spontaneous
  Country: US (occurrence: US)
  Receive Date: 20111109
  Receipt Date: 20131211
  Transmission Date: 20140711
  Serious: Yes (Hospitalization)
  Sender: FDA-Public Use
  Company Number: US-GLAXOSMITHKLINE-A0915617A

PATIENT
  Age: 76 Year
  Sex: Male

DRUGS (1)
  1. AVANDIA [Suspect]
     Indication: DIABETES MELLITUS
     Dosage: 4MG PER DAY
     Route: 048
     Dates: start: 200404, end: 200712

REACTIONS (8)
  - Cardiac failure congestive [Recovering/Resolving]
  - Generalised oedema [Unknown]
  - Oedema [Unknown]
  - Dyspnoea [Unknown]
  - Cardiomegaly [Unknown]
  - Electrocardiogram abnormal [Unknown]
  - Diastolic dysfunction [Unknown]
  - Aortic valve sclerosis [Unknown]
